FAERS Safety Report 16210596 (Version 1)
Quarter: 2019Q2

REPORT INFORMATION
  Report Type: Spontaneous
  Country: US (occurrence: US)
  Receive Date: 20190418
  Receipt Date: 20190418
  Transmission Date: 20190711
  Serious: No
  Sender: FDA-Public Use
  Company Number: US-LUPIN PHARMACEUTICALS INC.-2019-01032

PATIENT
  Age: 54 Year
  Sex: Female
  Weight: 52.16 kg

DRUGS (1)
  1. DESVENLAFAXINE EXTENDED RELEASE TABLET 50 MG [Suspect]
     Active Substance: DESVENLAFAXINE
     Indication: ANXIETY
     Dosage: 50 MILLIGRAM, QD
     Route: 048
     Dates: start: 20171107, end: 20171111

REACTIONS (4)
  - Panic attack [Not Recovered/Not Resolved]
  - Loss of personal independence in daily activities [Not Recovered/Not Resolved]
  - Insomnia [Not Recovered/Not Resolved]
  - Tinnitus [Not Recovered/Not Resolved]

NARRATIVE: CASE EVENT DATE: 201711
